FAERS Safety Report 23452219 (Version 1)
Quarter: 2024Q1

REPORT INFORMATION
  Report Type: Spontaneous
  Country: ES (occurrence: ES)
  Receive Date: 20240129
  Receipt Date: 20240129
  Transmission Date: 20240409
  Serious: Yes (Other)
  Sender: FDA-Public Use
  Company Number: ES-FreseniusKabi-FK202401113

PATIENT

DRUGS (3)
  1. IRINOTECAN HYDROCHLORIDE [Suspect]
     Active Substance: IRINOTECAN HYDROCHLORIDE
     Indication: Product used for unknown indication
     Dosage: FOLFIRI-135 MG/M2--236 MG
  2. LEUCOVORIN [Suspect]
     Active Substance: LEUCOVORIN\LEUCOVORIN CALCIUM
     Indication: Product used for unknown indication
  3. FLUOROURACIL [Suspect]
     Active Substance: FLUOROURACIL
     Indication: Product used for unknown indication

REACTIONS (6)
  - Neurotoxicity [Unknown]
  - Speech disorder [Unknown]
  - Asthenia [Unknown]
  - Odynophagia [Unknown]
  - Discomfort [Unknown]
  - Nasopharyngitis [Unknown]
